FAERS Safety Report 7728449-X (Version None)
Quarter: 2011Q3

REPORT INFORMATION
  Report Type: 
  Country: None (occurrence: None)
  Receive Date: 20110905
  Receipt Date: 20110823
  Transmission Date: 20111222
  Serious: Yes (Hospitalization, Other)
  Sender: FDA-Public Use
  Company Number: PHHY2011BR75427

PATIENT
  Sex: Female
  Weight: 69 kg

DRUGS (8)
  1. DOMPERIDONE [Concomitant]
     Dosage: 10 MG, TID
     Route: 048
     Dates: start: 20110301
  2. ZOLEDRONOC ACID [Suspect]
     Indication: OSTEOPOROSIS
     Dosage: 5 MG/100 ML
     Route: 042
     Dates: start: 20100801
  3. LUFTAL [Concomitant]
     Dosage: UNK UKN, UNK
     Route: 048
     Dates: start: 20060101
  4. PAROXETINE HCL [Concomitant]
     Indication: DEPRESSION
     Dosage: 20 MG, UNK
     Route: 048
     Dates: start: 20070101
  5. GLICAMIN [Concomitant]
     Indication: DIABETES MELLITUS
     Dosage: 5 MG, BID
     Dates: start: 19920101
  6. OMEPRAZOLE [Concomitant]
     Dosage: 20 MG, BID
     Route: 048
     Dates: start: 20060101
  7. PROMETHAZINE [Concomitant]
     Dosage: 25 MG, UNK
     Route: 048
  8. CLONAZEPAM [Concomitant]
     Indication: INSOMNIA
     Dosage: 2 MG, UNK
     Dates: start: 20070101

REACTIONS (5)
  - BONE PAIN [None]
  - OESOPHAGEAL DISORDER [None]
  - WEIGHT DECREASED [None]
  - INSOMNIA [None]
  - PAIN [None]
